FAERS Safety Report 25936578 (Version 1)
Quarter: 2025Q4

REPORT INFORMATION
  Report Type: Spontaneous
  Country: US (occurrence: None)
  Receive Date: 20251017
  Receipt Date: 20251017
  Transmission Date: 20260118
  Serious: Yes (Hospitalization)
  Sender: FDA-CTU
  Company Number: None

PATIENT
  Age: 54 Year
  Sex: Male

DRUGS (6)
  1. EVEROLIMUS [Suspect]
     Active Substance: EVEROLIMUS
     Indication: Renal transplant
     Dosage: FREQUENCY : 3 TIMES A DAY;?
     Route: 048
     Dates: start: 20240319, end: 20251017
  2. MYCOPHENOLIC ACID [Suspect]
     Active Substance: MYCOPHENOLIC ACID
     Indication: Renal transplant
     Dosage: FREQUENCY : TWICE A DAY;?
     Route: 048
     Dates: start: 20220420
  3. OXYCODONE [Concomitant]
     Active Substance: OXYCODONE
  4. CIPROFLOXACIN [Concomitant]
     Active Substance: CIPROFLOXACIN
  5. PREDNISONE [Concomitant]
     Active Substance: PREDNISONE
  6. LABETALOL [Concomitant]
     Active Substance: LABETALOL

REACTIONS (3)
  - Renal transplant [None]
  - Skin cancer [None]
  - Therapy change [None]

NARRATIVE: CASE EVENT DATE: 20251017
